FAERS Safety Report 10094538 (Version 4)
Quarter: 2016Q3

REPORT INFORMATION
  Report Type: Spontaneous
  Country: CA (occurrence: CA)
  Receive Date: 20140422
  Receipt Date: 20160826
  Transmission Date: 20161108
  Serious: Yes (Other)
  Sender: FDA-Public Use
  Company Number: CA-ROCHE-1386569

PATIENT
  Sex: Female

DRUGS (4)
  1. XOLAIR [Suspect]
     Active Substance: OMALIZUMAB
     Dosage: 150 MG, EVERY FOUR WEEKS
     Route: 058
     Dates: start: 20160725, end: 20160725
  2. XOLAIR [Suspect]
     Active Substance: OMALIZUMAB
     Dosage: 150 MG, EVERY FOUR WEEKS
     Route: 058
     Dates: start: 20110907
  3. XOLAIR [Suspect]
     Active Substance: OMALIZUMAB
     Indication: ASTHMA
     Dosage: 150 MG, EVERY FOUR WEEKS
     Route: 058
     Dates: start: 20050811
  4. ADVAIR HFA [Concomitant]
     Active Substance: FLUTICASONE PROPIONATE\SALMETEROL XINAFOATE
     Indication: PRODUCT USED FOR UNKNOWN INDICATION
     Dosage: REPORTED AS ADVAIR DISKUS
     Route: 065

REACTIONS (6)
  - Weight decreased [Unknown]
  - Middle insomnia [Unknown]
  - Drug ineffective [Unknown]
  - Asthma [Unknown]
  - Sleep apnoea syndrome [Unknown]
  - Malaise [Unknown]
